FAERS Safety Report 22650917 (Version 1)
Quarter: 2023Q2

REPORT INFORMATION
  Report Type: Spontaneous
  Country: ES (occurrence: None)
  Receive Date: 20230628
  Receipt Date: 20230628
  Transmission Date: 20230722
  Serious: Yes (Hospitalization)
  Sender: FDA-Public Use
  Company Number: 2023A140731

PATIENT
  Age: 70 Year
  Sex: Female

DRUGS (5)
  1. OMEPRAZOLE [Interacting]
     Active Substance: OMEPRAZOLE
     Indication: Gastrooesophageal reflux disease
     Route: 048
     Dates: start: 20110802, end: 20230610
  2. PROLIA [Interacting]
     Active Substance: DENOSUMAB
     Indication: Osteoporosis
     Dosage: 1 EVERY 6 MONTHS; IN SYRINGE PREFILLED, 1 PREFILLED SYRINGE OF 1 ML
     Route: 058
     Dates: start: 20230606, end: 20230608
  3. HYDROCHLOROTHIAZIDE\LOSARTAN POTASSIUM [Interacting]
     Active Substance: HYDROCHLOROTHIAZIDE\LOSARTAN POTASSIUM
     Indication: Hypertension
     Route: 048
     Dates: start: 20220609, end: 20230610
  4. ATORVASTATIN [Concomitant]
     Active Substance: ATORVASTATIN
     Indication: Dyslipidaemia
     Dates: start: 20230120
  5. CALCIUM CARBONATE [Concomitant]
     Active Substance: CALCIUM CARBONATE
     Indication: Osteoporosis
     Dosage: 1000 MG/800 IU
     Route: 048
     Dates: start: 20110802

REACTIONS (4)
  - Hypocalcaemia [Recovered/Resolved]
  - Muscle contractions involuntary [Recovered/Resolved]
  - Hypomagnesaemia [Recovered/Resolved]
  - Diarrhoea [Unknown]

NARRATIVE: CASE EVENT DATE: 20230608
